FAERS Safety Report 9468510 (Version 2)
Quarter: 2013Q4

REPORT INFORMATION
  Report Type: Spontaneous
  Country: JP (occurrence: JP)
  Receive Date: 20130821
  Receipt Date: 20131004
  Transmission Date: 20140711
  Serious: Yes (Death, Hospitalization)
  Sender: FDA-Public Use
  Company Number: JP-ALEXION PHARMACEUTICALS INC.-A201301952

PATIENT
  Age: 85 Year
  Sex: Female

DRUGS (9)
  1. SOLIRIS 300MG [Suspect]
     Indication: PAROXYSMAL NOCTURNAL HAEMOGLOBINURIA
     Dosage: 900 MG, Q2W
     Route: 042
     Dates: start: 20121102, end: 20130802
  2. PREDONINE [Concomitant]
     Dosage: 10 MG, QD
     Dates: start: 20130809, end: 20130809
  3. THYRADIN-S [Concomitant]
     Dosage: 150 ?G, QD
     Dates: end: 20130809
  4. DIART [Concomitant]
     Dosage: 30 MG, QD
     Dates: end: 20130809
  5. AMLODIN [Concomitant]
     Dosage: 5 MG, QD
     Dates: end: 20130809
  6. METHYCOBAL [Concomitant]
     Dosage: 1500 QD
     Dates: end: 20130809
  7. MUCOSTA [Concomitant]
     Dosage: 300 MG, QD
     Dates: end: 20130809
  8. BASEN [Concomitant]
     Dosage: 0.9 MG, QD
     Dates: end: 20130809
  9. BLOOD TRANSFUSION, AUXILIARY PRODUCTS [Concomitant]
     Dosage: 6 UNITS, 3 TIMES
     Dates: start: 2013, end: 2013

REACTIONS (11)
  - Death [Fatal]
  - Disseminated intravascular coagulation [Unknown]
  - Extradural haematoma [Unknown]
  - Altered state of consciousness [Unknown]
  - Hydronephrosis [Unknown]
  - Infection [Unknown]
  - C-reactive protein increased [Unknown]
  - Carcinoembryonic antigen increased [Unknown]
  - Lactate dehydrogenase urine increased [Unknown]
  - Blood creatinine increased [Unknown]
  - Haemoglobin decreased [Unknown]
